FAERS Safety Report 8652218 (Version 8)
Quarter: 2018Q4

REPORT INFORMATION
  Report Type: Report from Study
  Country: JP (occurrence: JP)
  Receive Date: 20120706
  Receipt Date: 20181001
  Transmission Date: 20190205
  Serious: Yes (Other)
  Sender: FDA-Public Use
  Company Number: PHHY2011JP112757

PATIENT
  Age: 62 Year
  Sex: Female

DRUGS (28)
  1. HUMAN RED BLOOD CELLS [Concomitant]
     Active Substance: HUMAN RED BLOOD CELL
     Dosage: 2 IU, UNK
     Route: 065
     Dates: end: 20110407
  2. TAKEPRON [Concomitant]
     Active Substance: LANSOPRAZOLE
     Indication: PROPHYLAXIS
     Dosage: 15 MG, UNK
     Route: 048
     Dates: start: 20120727
  3. MUCODYNE [Concomitant]
     Active Substance: CARBOCYSTEINE
     Indication: BRONCHITIS CHRONIC
     Dosage: 1500 MG, UNK
     Route: 048
     Dates: start: 20110107, end: 20130110
  4. HARNAL [Concomitant]
     Active Substance: TAMSULOSIN HYDROCHLORIDE
     Indication: PRODUCT USED FOR UNKNOWN INDICATION
     Dosage: 15 MG, UNK
     Route: 048
     Dates: start: 20111206
  5. SPIRIVA [Concomitant]
     Active Substance: TIOTROPIUM BROMIDE MONOHYDRATE
     Indication: BRONCHITIS CHRONIC
     Dosage: 18 UG, UNK
     Route: 055
     Dates: start: 20111206
  6. HOKUNALIN [Concomitant]
     Active Substance: TULOBUTEROL
     Indication: CHRONIC MYELOID LEUKAEMIA
     Dosage: 2 MG, TID
     Route: 062
     Dates: start: 20110107, end: 20110603
  7. ADONA [CARBAZOCHROME SODIUM SULFONATE] [Concomitant]
     Active Substance: CARBAZOCHROME SODIUM SULFONATE
     Indication: GASTROINTESTINAL ANGIODYSPLASIA
     Dosage: 90 MG, UNK
     Route: 048
     Dates: start: 20110121, end: 20110221
  8. PREDONINE [Concomitant]
     Active Substance: PREDNISOLONE
     Dosage: 20 MG
     Route: 065
  9. CELECOX [Concomitant]
     Active Substance: CELECOXIB
     Indication: BACK PAIN
     Dosage: 300 MG, UNK
     Route: 048
     Dates: start: 20120921
  10. TRANSAMIN [Concomitant]
     Active Substance: TRANEXAMIC ACID
     Indication: GASTROINTESTINAL ANGIODYSPLASIA
     Dosage: 750 MG, UNK
     Route: 048
     Dates: start: 20110121, end: 20110221
  11. MECOBALAMIN [Concomitant]
     Active Substance: METHYLCOBALAMIN
     Indication: PERIPHERAL ARTERY STENOSIS
     Dosage: 1500 UG, UNK
     Route: 048
     Dates: start: 20111206
  12. BISOLVON [Concomitant]
     Active Substance: BROMHEXINE HYDROCHLORIDE
     Indication: BRONCHITIS CHRONIC
     Dosage: 12 MG, UNK
     Route: 048
     Dates: start: 20110315, end: 20110322
  13. ANPLAG [Concomitant]
     Active Substance: SARPOGRELATE
     Indication: PROPHYLAXIS
     Dosage: 300 MG, UNK
     Route: 048
     Dates: start: 20120822
  14. VITAMINS NOS [Concomitant]
     Active Substance: VITAMINS
     Indication: PERIPHERAL ARTERY STENOSIS
     Dosage: 15 UG, UNK
     Route: 048
     Dates: start: 20111206
  15. HALCION [Concomitant]
     Active Substance: TRIAZOLAM
     Indication: INSOMNIA
     Dosage: 0.25 MG, UNK
     Route: 048
     Dates: start: 20110221, end: 20130110
  16. HUMAN RED BLOOD CELLS [Concomitant]
     Active Substance: HUMAN RED BLOOD CELL
     Dosage: 2 IU, UNK
     Route: 065
  17. HUMAN RED BLOOD CELLS [Concomitant]
     Active Substance: HUMAN RED BLOOD CELL
     Dosage: 2 IU, UNK
     Route: 065
  18. TASIGNA [Suspect]
     Active Substance: NILOTINIB
     Indication: CHRONIC MYELOID LEUKAEMIA
     Dosage: 400 MG, QD
     Route: 048
     Dates: start: 20110107
  19. GASTROM [Concomitant]
     Active Substance: ECABET SODIUM
     Indication: CONSTIPATION
     Dosage: 3 G, UNK
     Route: 048
     Dates: start: 20110121, end: 20130110
  20. LOXONIN [Concomitant]
     Active Substance: LOXOPROFEN SODIUM
     Indication: BACK PAIN
     Dosage: 60 MG, UNK
     Route: 048
     Dates: start: 20110227, end: 20110427
  21. CRAVIT [Concomitant]
     Active Substance: LEVOFLOXACIN
     Dosage: 500 MG
     Route: 048
     Dates: end: 20110804
  22. HUMAN RED BLOOD CELLS [Concomitant]
     Active Substance: HUMAN RED BLOOD CELL
     Indication: GASTROINTESTINAL ANGIODYSPLASIA
     Dosage: 2 IU, UNK
     Route: 065
     Dates: start: 20110108
  23. MAGMITT [Concomitant]
     Active Substance: MAGNESIUM OXIDE
     Indication: CONSTIPATION
     Dosage: 1500 MG, UNK
     Route: 048
     Dates: start: 20110324
  24. UNIPHLY LA [Concomitant]
     Indication: BRONCHITIS CHRONIC
     Dosage: 400 MG, UNK
     Route: 048
     Dates: start: 20110107, end: 20130110
  25. PENTASA [Concomitant]
     Active Substance: MESALAMINE
     Indication: CONSTIPATION
     Dosage: 1500 MG, UNK
     Route: 048
     Dates: start: 20110121, end: 20110221
  26. PREDONINE [Concomitant]
     Active Substance: PREDNISOLONE
     Indication: PRODUCT USED FOR UNKNOWN INDICATION
     Dosage: 20 MG
     Route: 048
     Dates: start: 20110619
  27. PREDONINE [Concomitant]
     Active Substance: PREDNISOLONE
     Dosage: 10 MG
     Route: 065
     Dates: end: 20110811
  28. CRAVIT [Concomitant]
     Active Substance: LEVOFLOXACIN
     Indication: PRODUCT USED FOR UNKNOWN INDICATION
     Dosage: 500 MG, UNK
     Route: 048
     Dates: start: 20110315, end: 20110804

REACTIONS (18)
  - Lipase increased [Recovered/Resolved]
  - Hypertension [Not Recovered/Not Resolved]
  - Peripheral arterial occlusive disease [Not Recovered/Not Resolved]
  - Pruritus [Recovered/Resolved]
  - Dry skin [Recovered/Resolved]
  - Constipation [Recovering/Resolving]
  - Bronchitis chronic [Unknown]
  - Eosinophil percentage increased [Recovered/Resolved]
  - Insomnia [Recovering/Resolving]
  - Haematochezia [Recovered/Resolved]
  - Gamma-glutamyltransferase increased [Recovered/Resolved]
  - Bronchitis chronic [Recovering/Resolving]
  - Gamma-glutamyltransferase increased [Not Recovered/Not Resolved]
  - Platelet count decreased [Recovered/Resolved]
  - Sciatica [Recovering/Resolving]
  - Lipase increased [Recovered/Resolved]
  - Hepatic function abnormal [Recovered/Resolved]
  - Bronchitis [Recovering/Resolving]

NARRATIVE: CASE EVENT DATE: 20110122
